FAERS Safety Report 5192816-1 (Version None)
Quarter: 2006Q4

REPORT INFORMATION
  Report Type: 
  Country: None (occurrence: None)
  Receive Date: 20061228
  Receipt Date: 20051110
  Transmission Date: 20070319
  Serious: No
  Sender: FDA-Public Use
  Company Number: US-GLAXOSMITHKLINE-A0581805A

PATIENT
  Age: 64 Year
  Sex: Male

DRUGS (1)
  1. FLONASE [Suspect]
     Indication: EAR CONGESTION
     Dosage: 2SPR PER DAY
     Route: 045

REACTIONS (1)
  - DRUG INEFFECTIVE [None]
